FAERS Safety Report 5544198-0 (Version None)
Quarter: 2007Q4

REPORT INFORMATION
  Report Type: 
  Country: None (occurrence: None)
  Receive Date: 20071210
  Receipt Date: 20061125
  Transmission Date: 20080405
  Serious: No
  Sender: FDA-Public Use
  Company Number: US-AMGEN-KDL201452

PATIENT
  Sex: Female

DRUGS (2)
  1. ENBREL [Suspect]
     Indication: RHEUMATOID ARTHRITIS
     Route: 058
     Dates: start: 20051101
  2. HYDRA-ZIDE [Concomitant]

REACTIONS (4)
  - COUGH [None]
  - HEPATIC ENZYME INCREASED [None]
  - RHINORRHOEA [None]
  - SINUSITIS [None]
